FAERS Safety Report 5943722-3 (Version None)
Quarter: 2008Q4

REPORT INFORMATION
  Report Type: 
  Country: None (occurrence: None)
  Receive Date: 20081106
  Receipt Date: 20081002
  Transmission Date: 20090506
  Serious: No
  Sender: FDA-Public Use
  Company Number: US-ABBOTT-08P-163-0479542-00

PATIENT
  Sex: Male

DRUGS (2)
  1. KALETRA [Suspect]
     Indication: PNEUMOCYSTIS JIROVECI PNEUMONIA
     Route: 048
     Dates: start: 20080901
  2. TRUVADA [Interacting]
     Indication: PNEUMOCYSTIS JIROVECI PNEUMONIA

REACTIONS (2)
  - DRUG INTERACTION [None]
  - PYREXIA [None]
